FAERS Safety Report 24792160 (Version 1)
Quarter: 2024Q4

REPORT INFORMATION
  Report Type: Spontaneous
  Country: JP (occurrence: JP)
  Receive Date: 20241231
  Receipt Date: 20241231
  Transmission Date: 20250115
  Serious: Yes (Death, Hospitalization)
  Sender: NOVITIUM PHARMA
  Company Number: JP-NOVITIUMPHARMA-2024JPNVP02990

PATIENT
  Age: 84 Year
  Sex: Female

DRUGS (8)
  1. DEXAMETHASONE [Suspect]
     Active Substance: DEXAMETHASONE
     Indication: Immune thrombocytopenia
  2. PILSICAINIDE [Concomitant]
     Active Substance: PILSICAINIDE
     Indication: Product used for unknown indication
  3. EPINASTINE [Concomitant]
     Active Substance: EPINASTINE
     Indication: Product used for unknown indication
  4. CANDESARTAN CILEXETIL [Concomitant]
     Active Substance: CANDESARTAN CILEXETIL
     Indication: Product used for unknown indication
  5. MAGNESIUM OXIDE [Concomitant]
     Active Substance: MAGNESIUM OXIDE
     Indication: Product used for unknown indication
  6. FUROSEMIDE [Concomitant]
     Active Substance: FUROSEMIDE
     Indication: Pleural effusion
  7. METHYLPREDNISOLONE [Concomitant]
     Active Substance: METHYLPREDNISOLONE
     Indication: Immune thrombocytopenia
  8. Immune-globulin [Concomitant]
     Indication: Immune thrombocytopenia
     Route: 042

REACTIONS (1)
  - Drug ineffective [Fatal]
